FAERS Safety Report 9958537 (Version 5)
Quarter: 2014Q2

REPORT INFORMATION
  Report Type: Report from Study
  Country: AU (occurrence: AU)
  Receive Date: 20140305
  Receipt Date: 20140606
  Transmission Date: 20141212
  Serious: Yes (Hospitalization)
  Sender: FDA-Public Use
  Company Number: AU-ROCHE-1254721

PATIENT
  Age: 56 Year
  Sex: Female
  Weight: 58.4 kg

DRUGS (20)
  1. OBINUTUZUMAB [Suspect]
     Indication: NON-HODGKIN^S LYMPHOMA UNSPECIFIED HISTOLOGY INDOLENT
     Dosage: VOLUME OF LAST STUDY DRUG ADMINISTERED: 250ML,?DOSE CONCENTRATION: 1000MG/ML,?MOST RECENT DOSE OF ST
     Route: 042
     Dates: start: 20111221
  2. BENDAMUSTINE [Suspect]
     Indication: NON-HODGKIN^S LYMPHOMA UNSPECIFIED HISTOLOGY INDOLENT
     Dosage: DOSE OF LAST STUDY DRUG ADMINISTERED: 155 MG.
     Route: 042
     Dates: start: 20111221, end: 20120510
  3. CIPROFLOXACIN [Concomitant]
     Indication: MOUTH ULCERATION
     Route: 065
     Dates: start: 20130905, end: 20130910
  4. PARACETAMOL [Concomitant]
     Indication: PROPHYLAXIS
     Route: 065
     Dates: start: 20111221, end: 20130719
  5. LORATADINE [Concomitant]
     Indication: PROPHYLAXIS
     Route: 065
     Dates: start: 20111221, end: 20130719
  6. CLIMARA [Concomitant]
     Indication: MENOPAUSE
  7. VALTREX [Concomitant]
     Indication: MOUTH ULCERATION
     Route: 065
     Dates: start: 20130717, end: 20130721
  8. VALTREX [Concomitant]
     Route: 065
     Dates: start: 20130722, end: 20130801
  9. VALTREX [Concomitant]
     Route: 065
     Dates: start: 20130906
  10. VALTREX [Concomitant]
     Route: 065
     Dates: start: 20130830
  11. WARFARIN SODIUM [Concomitant]
     Indication: DEEP VEIN THROMBOSIS
     Route: 065
     Dates: start: 20130821
  12. PETER MAC MOUTHWASH (SODIUM CHLORIDE, SODIUM BICARBONATE) [Concomitant]
     Indication: MOUTH ULCERATION
     Route: 065
     Dates: start: 20130829, end: 20130930
  13. NILSTAT (AUSTRALIA) [Concomitant]
     Indication: MOUTH ULCERATION
     Dosage: ORAL LIQUID
     Route: 048
     Dates: start: 20131020, end: 20131215
  14. CURASEPT ADS 205 [Concomitant]
     Indication: MOUTH ULCERATION
     Dosage: CURASEPT MOUTHWASH. INGREDIENTS: CHLORHEXIDINE AND SODIUM FLUORIDE
     Route: 065
     Dates: start: 20130802
  15. PANADOL [Concomitant]
     Indication: ORAL PAIN
     Route: 065
     Dates: start: 20130728, end: 20130730
  16. PANADOL [Concomitant]
     Route: 065
     Dates: start: 20130731, end: 20130801
  17. ENDONE [Concomitant]
     Indication: ORAL PAIN
     Route: 065
     Dates: start: 20130731, end: 20130801
  18. CLEXANE [Concomitant]
     Indication: DEEP VEIN THROMBOSIS
     Route: 065
     Dates: start: 20130820, end: 20130825
  19. CHLORHEXIDINE MOUTHWASH [Concomitant]
     Indication: MOUTH ULCERATION
     Route: 065
     Dates: start: 20130829, end: 20130902
  20. CODEINE LINCTUS [Concomitant]
     Indication: ORAL PAIN
     Route: 065
     Dates: start: 20130906, end: 20131215

REACTIONS (1)
  - Febrile neutropenia [Recovered/Resolved]
